FAERS Safety Report 6867790-X (Version None)
Quarter: 2010Q3

REPORT INFORMATION
  Report Type: 
  Country: None (occurrence: None)
  Receive Date: 20100722
  Receipt Date: 20100715
  Transmission Date: 20110219
  Serious: Yes (Other)
  Sender: FDA-Public Use
  Company Number: CA-SANOFI-AVENTIS-2010SA036917

PATIENT
  Age: 60 Year
  Sex: Female
  Weight: 77.27 kg

DRUGS (10)
  1. MULTAQ [Suspect]
     Indication: ATRIAL FIBRILLATION
     Route: 048
     Dates: start: 20100313, end: 20100506
  2. METOPROLOL SUCCINATE [Concomitant]
     Indication: HEART RATE ABNORMAL
     Dosage: 50 MG IN THE MORNING, AND 100 MG IN THE EVENING.
     Route: 048
  3. METOPROLOL SUCCINATE [Concomitant]
     Indication: BLOOD PRESSURE ABNORMAL
     Dosage: 50 MG IN THE MORNING, AND 100 MG IN THE EVENING.
     Route: 048
  4. FUROSEMIDE [Concomitant]
     Route: 048
  5. RAMIPRIL [Concomitant]
     Route: 048
  6. RAMIPRIL [Concomitant]
     Indication: BLOOD PRESSURE ABNORMAL
     Route: 048
  7. VERAPAMIL - SLOW RELEASE [Concomitant]
     Route: 048
  8. VERAPAMIL - SLOW RELEASE [Concomitant]
     Indication: BLOOD PRESSURE ABNORMAL
     Route: 048
  9. WARFARIN SODIUM [Concomitant]
     Indication: ANTIPLATELET THERAPY
     Route: 048
  10. WARFARIN SODIUM [Concomitant]
     Indication: ATRIAL FIBRILLATION
     Route: 048

REACTIONS (5)
  - CHEST PAIN [None]
  - DIARRHOEA [None]
  - DYSPNOEA [None]
  - HYPOTENSION [None]
  - PULMONARY CONGESTION [None]
